FAERS Safety Report 4568439-1 (Version None)
Quarter: 2005Q1

REPORT INFORMATION
  Report Type: 
  Country: None (occurrence: None)
  Receive Date: 20050131
  Receipt Date: 20041222
  Transmission Date: 20050727
  Serious: Yes (Hospitalization, Other)
  Sender: FDA-Public Use
  Company Number: SUS1-2004-00887

PATIENT
  Age: 31 Year
  Sex: Male

DRUGS (1)
  1. PENTASA [Suspect]
     Indication: COLITIS ULCERATIVE
     Dosage: 1 G, DAILY, ORAL
     Route: 048
     Dates: start: 19960101, end: 20041010

REACTIONS (7)
  - ANTINEUTROPHIL CYTOPLASMIC ANTIBODY POSITIVE [None]
  - BLOOD ALBUMIN DECREASED [None]
  - COLITIS ULCERATIVE [None]
  - NEPHROTIC SYNDROME [None]
  - RENAL DISORDER [None]
  - RENAL FAILURE [None]
  - WEIGHT INCREASED [None]
